FAERS Safety Report 14497893 (Version 1)
Quarter: 2018Q1

REPORT INFORMATION
  Report Type: Spontaneous
  Country: US (occurrence: US)
  Receive Date: 20180206
  Receipt Date: 20180206
  Transmission Date: 20180509
  Serious: Yes (Other)
  Sender: FDA-Public Use
  Company Number: None

PATIENT
  Age: 49 Year
  Sex: Female
  Weight: 56.25 kg

DRUGS (7)
  1. AMITRIPTYLINE [Concomitant]
     Active Substance: AMITRIPTYLINE
  2. TURMERIC [Concomitant]
     Active Substance: HERBALS\TURMERIC
  3. BUPROPION HCL EXTENDED RELEASE (SR) TAB 200MG [Suspect]
     Active Substance: BUPROPION HYDROCHLORIDE
     Indication: ANXIETY
     Dosage: ?          QUANTITY:1 TABLET(S);?
     Route: 048
     Dates: start: 20180131, end: 20180204
  4. PAXIL [Concomitant]
     Active Substance: PAROXETINE HYDROCHLORIDE
  5. FAMVIR [Concomitant]
     Active Substance: FAMCICLOVIR
  6. MAGNESIUM [Concomitant]
     Active Substance: MAGNESIUM
  7. DAILY VITAMIN [Concomitant]
     Active Substance: VITAMINS

REACTIONS (11)
  - Palpitations [None]
  - Hypoaesthesia [None]
  - Product substitution issue [None]
  - Dysphagia [None]
  - Paraesthesia [None]
  - Dry mouth [None]
  - Pollakiuria [None]
  - Facial paralysis [None]
  - Headache [None]
  - Memory impairment [None]
  - Tic [None]

NARRATIVE: CASE EVENT DATE: 20180204
